FAERS Safety Report 8970835 (Version 1)
Quarter: 2012Q4

REPORT INFORMATION
  Report Type: 
  Country: US (occurrence: US)
  Receive Date: 20121218
  Receipt Date: 20121218
  Transmission Date: 20130627
  Serious: No
  Sender: FDA-Public Use
  Company Number: US-VERTEX PHARMACEUTICALS INC.-2012-026108

PATIENT
  Sex: Male
  Weight: 115.19 kg

DRUGS (18)
  1. VX-950 (TELAPREVIR) [Suspect]
     Indication: HEPATITIS C
     Dosage: 750 mg, tid
     Route: 048
  2. PEGASYS [Suspect]
     Indication: HEPATITIS C
  3. RIBAVIRIN [Suspect]
     Indication: HEPATITIS C
  4. ECHINACEA                          /01323501/ [Concomitant]
  5. FISH OIL [Concomitant]
  6. GINKOBA [Concomitant]
  7. GINSENG                            /01384001/ [Concomitant]
  8. HYDROCODONE [Concomitant]
  9. IMODIUM [Concomitant]
  10. LEVITRA [Concomitant]
  11. MULTIVITAMIN                       /00097801/ [Concomitant]
  12. TRAMADOL [Concomitant]
  13. VITAMIN B [Concomitant]
  14. VITAMIN C                          /00008001/ [Concomitant]
  15. VITAMIN D3 [Concomitant]
  16. VITAMIN K                          /00032401/ [Concomitant]
  17. ZINC [Concomitant]
  18. ZINC PICOLINATE [Concomitant]

REACTIONS (4)
  - Injection site rash [Unknown]
  - Hair growth abnormal [Unknown]
  - Rash generalised [Unknown]
  - Blister [Unknown]
